FAERS Safety Report 5171349-2 (Version None)
Quarter: 2006Q4

REPORT INFORMATION
  Report Type: 
  Country: None (occurrence: None)
  Receive Date: 20061207
  Receipt Date: 20061207
  Transmission Date: 20070319
  Serious: Yes (Death)
  Sender: FDA-Public Use
  Company Number: None

PATIENT
  Sex: Female
  Weight: 55.7924 kg

DRUGS (2)
  1. VYTORIN [Suspect]
     Indication: CORONARY ARTERY DISEASE
     Dosage: ONE PO QD
     Route: 048
  2. VYTORIN [Suspect]
     Indication: LIPIDS INCREASED
     Dosage: ONE PO QD
     Route: 048

REACTIONS (2)
  - ASTHENIA [None]
  - BLOOD CREATINE PHOSPHOKINASE INCREASED [None]
